FAERS Safety Report 20219852 (Version 1)
Quarter: 2021Q4

REPORT INFORMATION
  Report Type: Report from Study
  Country: US (occurrence: US)
  Receive Date: 20211222
  Receipt Date: 20211222
  Transmission Date: 20220303
  Serious: Yes (Death, Hospitalization)
  Sender: FDA-Public Use
  Company Number: US-BAUSCH-BL-2021-041904

PATIENT
  Age: 77 Year
  Sex: Female

DRUGS (2)
  1. XIFAXAN [Suspect]
     Active Substance: RIFAXIMIN
     Indication: Hepatic encephalopathy
     Dosage: FOR THE PAST 5 YEARS
     Route: 048
     Dates: start: 2016
  2. TIZANIDINE [Concomitant]
     Active Substance: TIZANIDINE
     Indication: Movement disorder

REACTIONS (3)
  - Death [Fatal]
  - Migraine [Unknown]
  - Hospice care [Unknown]

NARRATIVE: CASE EVENT DATE: 20210101
